FAERS Safety Report 11223683 (Version 1)
Quarter: 2015Q2

REPORT INFORMATION
  Report Type: Spontaneous
  Country: US (occurrence: US)
  Receive Date: 20150629
  Receipt Date: 20150629
  Transmission Date: 20150821
  Serious: No
  Sender: FDA-Public Use
  Company Number: US-TEVA-565111USA

PATIENT
  Sex: Female

DRUGS (1)
  1. ANASTROZOLE. [Suspect]
     Active Substance: ANASTROZOLE

REACTIONS (8)
  - Myalgia [Unknown]
  - Arthralgia [Unknown]
  - Dry throat [Unknown]
  - Dizziness [Unknown]
  - Hypersomnia [Unknown]
  - Dry eye [Unknown]
  - Headache [Unknown]
  - Fatigue [Unknown]
